FAERS Safety Report 6852296-4 (Version None)
Quarter: 2010Q3

REPORT INFORMATION
  Report Type: 
  Country: None (occurrence: None)
  Receive Date: 20100717
  Receipt Date: 20071107
  Transmission Date: 20110219
  Serious: No
  Sender: FDA-Public Use
  Company Number: US-PFIZER INC-2007096586

PATIENT
  Age: 58 Year
  Sex: Male
  Weight: 82.6 kg

DRUGS (1)
  1. CHANTIX [Suspect]
     Indication: SMOKING CESSATION THERAPY
     Dates: start: 20070701, end: 20070810

REACTIONS (6)
  - ABNORMAL DREAMS [None]
  - EJACULATION FAILURE [None]
  - HEADACHE [None]
  - HUNGER [None]
  - SEXUAL ACTIVITY INCREASED [None]
  - WEIGHT INCREASED [None]
